FAERS Safety Report 21354918 (Version 1)
Quarter: 2022Q3

REPORT INFORMATION
  Report Type: Spontaneous
  Country: US (occurrence: US)
  Receive Date: 20220920
  Receipt Date: 20220920
  Transmission Date: 20221027
  Serious: No
  Sender: FDA-Public Use
  Company Number: US-PFIZER INC-202201170159

PATIENT
  Age: 48 Year
  Sex: Female

DRUGS (5)
  1. PAXLOVID [Suspect]
     Active Substance: NIRMATRELVIR\RITONAVIR
     Indication: COVID-19 treatment
     Dosage: UNK
     Dates: start: 20220908, end: 20220913
  2. BUPROPION [Concomitant]
     Active Substance: BUPROPION
     Dosage: UNK
     Dates: start: 20220601, end: 20220913
  3. EMGALITY [Concomitant]
     Active Substance: GALCANEZUMAB-GNLM
     Dosage: UNK
     Dates: start: 20220819, end: 20220819
  4. FEVERFEW\TANACETUM PARTHENIUM [Concomitant]
     Active Substance: FEVERFEW\TANACETUM PARTHENIUM
     Dosage: UNK
     Dates: start: 20220101, end: 20220913
  5. BUTTERBUR ROOT EXTRACT/FICUS CARICA/SENNA ALEXANDRINA FRUIT [Concomitant]
     Dosage: UNK
     Dates: start: 20220101, end: 20220913

REACTIONS (8)
  - Disease recurrence [Not Recovered/Not Resolved]
  - Cough [Not Recovered/Not Resolved]
  - Pyrexia [Not Recovered/Not Resolved]
  - Sneezing [Not Recovered/Not Resolved]
  - Fatigue [Not Recovered/Not Resolved]
  - Oropharyngeal pain [Not Recovered/Not Resolved]
  - Back pain [Not Recovered/Not Resolved]
  - Productive cough [Not Recovered/Not Resolved]

NARRATIVE: CASE EVENT DATE: 20220917
